FAERS Safety Report 9778481 (Version 1)
Quarter: 2013Q4

REPORT INFORMATION
  Report Type: Spontaneous
  Country: US (occurrence: US)
  Receive Date: 20131223
  Receipt Date: 20131223
  Transmission Date: 20140711
  Serious: No
  Sender: FDA-Public Use
  Company Number: US-BAYER-2013-156291

PATIENT
  Sex: Male

DRUGS (5)
  1. ALEVE CAPLET [Suspect]
  2. BAYER GENUINE ASPIRIN ORIGINAL STRENGTH [Suspect]
  3. MOTRIN [Concomitant]
  4. FLEXERIL [Concomitant]
  5. LIDOCAINE [Concomitant]

REACTIONS (1)
  - Drug ineffective [None]
